FAERS Safety Report 16055805 (Version 3)
Quarter: 2019Q3

REPORT INFORMATION
  Report Type: Spontaneous
  Country: US (occurrence: US)
  Receive Date: 20190311
  Receipt Date: 20190913
  Transmission Date: 20191004
  Serious: Yes (Death, Other)
  Sender: FDA-Public Use
  Company Number: US-ASTRAZENECA-2018SF21104

PATIENT
  Age: 21514 Day
  Sex: Female
  Weight: 71.7 kg

DRUGS (56)
  1. PREVACID [Suspect]
     Active Substance: LANSOPRAZOLE
     Indication: GASTROOESOPHAGEAL REFLUX DISEASE
     Route: 065
     Dates: start: 20000101, end: 20160104
  2. VICTOZA [Concomitant]
     Active Substance: LIRAGLUTIDE
  3. NOVOLOG [Concomitant]
     Active Substance: INSULIN ASPART
  4. MUPIROCIN. [Concomitant]
     Active Substance: MUPIROCIN
  5. CLONIDINE. [Concomitant]
     Active Substance: CLONIDINE
  6. CIPROFLOXACIN. [Concomitant]
     Active Substance: CIPROFLOXACIN
  7. ASPIRIN. [Concomitant]
     Active Substance: ASPIRIN
  8. NEVANAC [Concomitant]
     Active Substance: NEPAFENAC
  9. ZITHROMAX [Concomitant]
     Active Substance: AZITHROMYCIN DIHYDRATE
  10. ZOCOR [Concomitant]
     Active Substance: SIMVASTATIN
  11. NEXIUM [Suspect]
     Active Substance: ESOMEPRAZOLE MAGNESIUM
     Indication: GASTROOESOPHAGEAL REFLUX DISEASE
     Route: 048
     Dates: start: 20010220, end: 20160104
  12. LOSARTAN. [Concomitant]
     Active Substance: LOSARTAN
     Indication: RENAL DISORDER
  13. CELEBREX [Concomitant]
     Active Substance: CELECOXIB
  14. PANTOPRAZOLE [Concomitant]
     Active Substance: PANTOPRAZOLE
  15. CELECOXIB. [Concomitant]
     Active Substance: CELECOXIB
  16. GLYBURIDE. [Concomitant]
     Active Substance: GLYBURIDE
  17. LOSARTAN. [Concomitant]
     Active Substance: LOSARTAN
  18. METOCLOPRAMIDE. [Concomitant]
     Active Substance: METOCLOPRAMIDE
  19. ISOSORBIDE DINITRATE. [Concomitant]
     Active Substance: ISOSORBIDE DINITRATE
  20. HYZAAR [Concomitant]
     Active Substance: HYDROCHLOROTHIAZIDE\LOSARTAN POTASSIUM
  21. FERROUS SULFATE. [Concomitant]
     Active Substance: FERROUS SULFATE
  22. ALPRAZOLAM. [Concomitant]
     Active Substance: ALPRAZOLAM
  23. ACEPHEN [Concomitant]
     Active Substance: ACETAMINOPHEN
  24. NEXIUM [Suspect]
     Active Substance: ESOMEPRAZOLE MAGNESIUM
     Indication: GASTROOESOPHAGEAL REFLUX DISEASE
     Route: 048
     Dates: start: 20140929
  25. METOPROLOL SUCCINATE. [Concomitant]
     Active Substance: METOPROLOL SUCCINATE
     Indication: HYPERTENSION
     Route: 065
     Dates: start: 20081024, end: 20100318
  26. LYRICA [Concomitant]
     Active Substance: PREGABALIN
  27. ISOSORBIDE. [Concomitant]
     Active Substance: ISOSORBIDE
  28. GLIPIZIDE. [Concomitant]
     Active Substance: GLIPIZIDE
  29. CLOPIDOGREL [Concomitant]
     Active Substance: CLOPIDOGREL BISULFATE
  30. COMBIVENT [Concomitant]
     Active Substance: ALBUTEROL SULFATE\IPRATROPIUM BROMIDE
  31. GLYCOL [Concomitant]
     Active Substance: ETHYLENE GLYCOL
  32. METOCLOPRAMIDE. [Concomitant]
     Active Substance: METOCLOPRAMIDE
  33. FUROSEMIDE. [Concomitant]
     Active Substance: FUROSEMIDE
  34. ZOLPIDEM [Concomitant]
     Active Substance: ZOLPIDEM TARTRATE
  35. QUINAPRIL. [Concomitant]
     Active Substance: QUINAPRIL
  36. FERROUS SULFATE. [Concomitant]
     Active Substance: FERROUS SULFATE
  37. NEXIUM [Suspect]
     Active Substance: ESOMEPRAZOLE MAGNESIUM
     Indication: GASTROOESOPHAGEAL REFLUX DISEASE
     Route: 048
     Dates: start: 2000, end: 2008
  38. PREVACID [Suspect]
     Active Substance: LANSOPRAZOLE
     Indication: GASTROOESOPHAGEAL REFLUX DISEASE
     Route: 065
     Dates: start: 2000, end: 2008
  39. CLOPIDOGREL [Concomitant]
     Active Substance: CLOPIDOGREL BISULFATE
  40. FOLIC ACID. [Concomitant]
     Active Substance: FOLIC ACID
  41. HYDROXYZINE PAMOATE. [Concomitant]
     Active Substance: HYDROXYZINE PAMOATE
  42. CLONIDINE. [Concomitant]
     Active Substance: CLONIDINE
  43. CALCIUM ACETATE. [Concomitant]
     Active Substance: CALCIUM ACETATE
  44. NITROGLYCERIN. [Concomitant]
     Active Substance: NITROGLYCERIN
  45. NEXIUM [Suspect]
     Active Substance: ESOMEPRAZOLE MAGNESIUM
     Indication: GASTROOESOPHAGEAL REFLUX DISEASE
     Route: 048
     Dates: start: 20070105, end: 20140724
  46. LEVEMIR [Concomitant]
     Active Substance: INSULIN DETEMIR
  47. VYTORIN [Concomitant]
     Active Substance: EZETIMIBE\SIMVASTATIN
  48. ZETIA [Concomitant]
     Active Substance: EZETIMIBE
  49. LASIX [Concomitant]
     Active Substance: FUROSEMIDE
  50. NEXIUM [Suspect]
     Active Substance: ESOMEPRAZOLE MAGNESIUM
     Indication: GASTROOESOPHAGEAL REFLUX DISEASE
     Route: 048
     Dates: start: 20090309
  51. HYDROCODONE [Concomitant]
     Active Substance: HYDROCODONE
  52. LOSARTAN. [Concomitant]
     Active Substance: LOSARTAN
     Route: 065
     Dates: start: 20100401, end: 20150728
  53. CLONIDINE. [Concomitant]
     Active Substance: CLONIDINE
     Indication: HYPERTENSION
     Route: 065
     Dates: start: 20080206, end: 20150707
  54. MIRALAX [Concomitant]
     Active Substance: POLYETHYLENE GLYCOL 3350
  55. VIGAMOX [Concomitant]
     Active Substance: MOXIFLOXACIN HYDROCHLORIDE
  56. CLONIDINE. [Concomitant]
     Active Substance: CLONIDINE

REACTIONS (4)
  - End stage renal disease [Fatal]
  - Acute kidney injury [Not Recovered/Not Resolved]
  - Renal injury [Unknown]
  - Chronic kidney disease [Not Recovered/Not Resolved]

NARRATIVE: CASE EVENT DATE: 20090402
